FAERS Safety Report 8157757-6 (Version None)
Quarter: 2012Q1

REPORT INFORMATION
  Report Type: 
  Country: None (occurrence: None)
  Receive Date: 20120222
  Receipt Date: 20120217
  Transmission Date: 20120608
  Serious: Yes (Congenital Anomaly)
  Sender: FDA-Public Use
  Company Number: FR-PFIZER INC-2011306370

PATIENT

DRUGS (2)
  1. MIFEPRISTONE (MIFEPREX) [Suspect]
     Dosage: 3 DF, SINGLE
     Route: 064
     Dates: start: 20100514, end: 20100514
  2. CYTOTEC [Suspect]
     Dosage: 2 DF, SINGLE
     Route: 064
     Dates: start: 20100516, end: 20100516

REACTIONS (4)
  - MATERNAL EXPOSURE DURING PREGNANCY [None]
  - CONGENITAL FOOT MALFORMATION [None]
  - CONGENITAL HAND MALFORMATION [None]
  - LIMB ASYMMETRY [None]
